FAERS Safety Report 4602265-X (Version None)
Quarter: 2005Q1

REPORT INFORMATION
  Report Type: 
  Country: None (occurrence: None)
  Receive Date: 20050201
  Receipt Date: 20040716
  Transmission Date: 20050727
  Serious: Yes (Hospitalization)
  Sender: FDA-Public Use
  Company Number: 200419242BWH

PATIENT
  Age: 60 Year
  Sex: Female

DRUGS (5)
  1. AVELOX [Suspect]
     Indication: RESPIRATORY TRACT INFECTION
     Dosage: 400 MG, ONCE, ORAL
     Route: 048
  2. ANTIHISTAMINE [Concomitant]
  3. BLOOD PRESSURE MEDICATIONS [Concomitant]
  4. BRONCHODILATORS [Concomitant]
  5. ANTI-LIPIDE [Concomitant]

REACTIONS (7)
  - ANAPHYLACTIC REACTION [None]
  - ANAPHYLACTIC SHOCK [None]
  - BLOOD PRESSURE DECREASED [None]
  - DIZZINESS [None]
  - DYSPNOEA [None]
  - RASH [None]
  - SYNCOPE [None]
